FAERS Safety Report 9265440 (Version 1)
Quarter: 2013Q2

REPORT INFORMATION
  Report Type: Spontaneous
  Country: FR (occurrence: FR)
  Receive Date: 20130501
  Receipt Date: 20130501
  Transmission Date: 20140414
  Serious: Yes (Hospitalization)
  Sender: FDA-Public Use
  Company Number: FR-ASTRAZENECA-2013SE28443

PATIENT
  Age: 34023 Day
  Sex: Female

DRUGS (8)
  1. OMEPRAZOLE [Suspect]
     Route: 048
     Dates: end: 20130225
  2. CRESTOR [Suspect]
     Indication: HYPERCHOLESTEROLAEMIA
     Route: 048
  3. SEROPLEX [Suspect]
     Route: 048
     Dates: end: 20130225
  4. PERINDOPRIL [Suspect]
     Indication: HYPERTENSION
     Route: 048
  5. PERINDOPRIL [Suspect]
     Indication: HYPERTENSION
     Route: 048
  6. LASILIX [Suspect]
     Indication: HYPERTENSION
     Route: 048
     Dates: end: 20130225
  7. BISOCE [Concomitant]
     Indication: HYPERTENSION
     Route: 048
  8. KARDEGIC [Concomitant]
     Route: 048

REACTIONS (2)
  - Hyponatraemia [Recovered/Resolved]
  - Confusional state [Recovered/Resolved]
